FAERS Safety Report 11135826 (Version 1)
Quarter: 2015Q2

REPORT INFORMATION
  Report Type: Spontaneous
  Country: TN (occurrence: TN)
  Receive Date: 20150526
  Receipt Date: 20150526
  Transmission Date: 20150821
  Serious: Yes (Other)
  Sender: FDA-Public Use
  Company Number: TN-PFIZER INC-2015173109

PATIENT
  Age: 35 Year
  Sex: Male

DRUGS (5)
  1. AMIKACIN [Concomitant]
     Active Substance: AMIKACIN
     Dosage: UNK
     Dates: start: 2012
  2. IMIPENEM [Concomitant]
     Active Substance: IMIPENEM
     Dosage: UNK
     Dates: start: 2012
  3. VANCOMYCIN [Concomitant]
     Active Substance: VANCOMYCIN
     Dosage: UNK
     Dates: start: 2012
  4. AMPHOTERICINE B [Concomitant]
     Active Substance: AMPHOTERICIN B
     Indication: FUNGAL INFECTION
     Dosage: UNK
     Dates: start: 2012
  5. TAZOCILLINE [Suspect]
     Active Substance: PIPERACILLIN SODIUM\TAZOBACTAM SODIUM
     Dosage: UNK
     Dates: start: 2012

REACTIONS (2)
  - Fungal sepsis [Recovered/Resolved]
  - Diarrhoea [Recovered/Resolved]

NARRATIVE: CASE EVENT DATE: 2012
